FAERS Safety Report 6721962-3 (Version None)
Quarter: 2010Q2

REPORT INFORMATION
  Report Type: 
  Country: None (occurrence: None)
  Receive Date: 20100512
  Receipt Date: 20100503
  Transmission Date: 20101027
  Serious: Yes (Other)
  Sender: FDA-Public Use
  Company Number: A0858729A

PATIENT
  Sex: Female

DRUGS (1)
  1. AVANDIA [Suspect]
     Route: 048
     Dates: start: 20040101

REACTIONS (5)
  - ACUTE MYOCARDIAL INFARCTION [None]
  - AMNESIA [None]
  - CARDIAC PACEMAKER INSERTION [None]
  - CARDIAC TAMPONADE [None]
  - VENTRICLE RUPTURE [None]
